FAERS Safety Report 7870951-4 (Version None)
Quarter: 2011Q4

REPORT INFORMATION
  Report Type: 
  Country: None (occurrence: None)
  Receive Date: 20111029
  Receipt Date: 20110221
  Transmission Date: 20120403
  Serious: No
  Sender: FDA-Public Use
  Company Number: US-AMGEN-USASP2011010170

PATIENT
  Age: 84 Year
  Sex: Female

DRUGS (2)
  1. ENBREL [Suspect]
     Indication: PSORIATIC ARTHROPATHY
     Dosage: 50 MG, QWK
     Dates: start: 20040820
  2. ENBREL [Suspect]
     Indication: PSORIASIS

REACTIONS (7)
  - PRURITUS [None]
  - FATIGUE [None]
  - ONYCHOMADESIS [None]
  - SKIN DISORDER [None]
  - PSORIASIS [None]
  - SKIN EXFOLIATION [None]
  - POOR QUALITY SLEEP [None]
